FAERS Safety Report 17291591 (Version 1)
Quarter: 2020Q1

REPORT INFORMATION
  Report Type: Spontaneous
  Country: US (occurrence: US)
  Receive Date: 20200117
  Receipt Date: 20200117
  Transmission Date: 20200409
  Serious: Yes (Other)
  Sender: FDA-Public Use
  Company Number: None

PATIENT
  Age: 72 Year
  Sex: Female

DRUGS (12)
  1. NINLARO [Suspect]
     Active Substance: IXAZOMIB CITRATE
     Indication: PLASMA CELL MYELOMA
     Dosage: ?          OTHER FREQUENCY:WEEKLY;?
     Route: 048
     Dates: start: 20190327
  2. LEVETIRACETAM 750MG [Concomitant]
     Active Substance: LEVETIRACETAM
  3. LISINOPRIL. [Concomitant]
     Active Substance: LISINOPRIL
  4. ASPIRIN 81MG EC [Concomitant]
  5. MIRTAZAPINE 7.5MG [Concomitant]
     Active Substance: MIRTAZAPINE
  6. VENTOLIN HFA INHALER [Concomitant]
  7. VALACYCLOVIR [Concomitant]
     Active Substance: VALACYCLOVIR HYDROCHLORIDE
  8. FAMOTIDINE 20MG [Concomitant]
     Active Substance: FAMOTIDINE
  9. ALPRAZOLAM 0.5MG [Concomitant]
     Active Substance: ALPRAZOLAM
  10. POTASSIUM CHL 20MEQ [Concomitant]
  11. PROBIOTIC [Concomitant]
     Active Substance: PROBIOTICS NOS
  12. REVLIMID [Suspect]
     Active Substance: LENALIDOMIDE

REACTIONS (2)
  - Therapy cessation [None]
  - Food poisoning [None]

NARRATIVE: CASE EVENT DATE: 20200101
